FAERS Safety Report 19513110 (Version 1)
Quarter: 2021Q3

REPORT INFORMATION
  Report Type: Report from Study
  Country: GB (occurrence: GB)
  Receive Date: 20210709
  Receipt Date: 20210709
  Transmission Date: 20211014
  Serious: Yes (Hospitalization, Other)
  Sender: FDA-Public Use
  Company Number: GB-TAKEDA-2021TEU006055

PATIENT
  Age: 65 Year
  Sex: Male

DRUGS (4)
  1. ALOGLIPTIN. [Suspect]
     Active Substance: ALOGLIPTIN
     Indication: TYPE 2 DIABETES MELLITUS
     Dosage: UNK
     Route: 065
  2. METFORMIN [Suspect]
     Active Substance: METFORMIN HYDROCHLORIDE
     Indication: TYPE 2 DIABETES MELLITUS
     Dosage: UNK
     Route: 065
     Dates: start: 202007
  3. EMPAGLIFLOZIN [Suspect]
     Active Substance: EMPAGLIFLOZIN
     Indication: TYPE 2 DIABETES MELLITUS
     Dosage: UNK
     Route: 065
  4. GLICLAZIDE [Suspect]
     Active Substance: GLICLAZIDE
     Indication: PRODUCT USED FOR UNKNOWN INDICATION
     Dosage: UNK
     Route: 065
     Dates: start: 202007

REACTIONS (19)
  - Sleep disorder [Unknown]
  - Night sweats [Unknown]
  - Condition aggravated [Unknown]
  - Neuropathy peripheral [Unknown]
  - Dizziness [Unknown]
  - Affective disorder [Unknown]
  - Muscle atrophy [Unknown]
  - Change of bowel habit [Unknown]
  - Constipation [Unknown]
  - Spondylolysis [Unknown]
  - Decreased appetite [Unknown]
  - Weight decreased [Recovering/Resolving]
  - Cachexia [Unknown]
  - Diverticulum [Unknown]
  - Blood glucose increased [Recovering/Resolving]
  - Lumbosacral radiculoplexus neuropathy [Unknown]
  - Impaired quality of life [Unknown]
  - Hyporeflexia [Unknown]
  - Asthenia [Unknown]
